FAERS Safety Report 5097930-7 (Version None)
Quarter: 2006Q3

REPORT INFORMATION
  Report Type: 
  Country: None (occurrence: None)
  Receive Date: 20060905
  Receipt Date: 20060905
  Transmission Date: 20061208
  Serious: Yes (Life-Threatening, Other)
  Sender: FDA-Public Use
  Company Number: None

PATIENT
  Age: 6 Year
  Sex: Female
  Weight: 18.5975 kg

DRUGS (1)
  1. SINGULAIR [Suspect]
     Indication: ASTHMA
     Dosage: 4 MG 1X DAILY @ NIGHT
     Dates: start: 20060824, end: 20060903

REACTIONS (13)
  - CONVERSION DISORDER [None]
  - CYANOSIS [None]
  - DELUSION [None]
  - HALLUCINATION [None]
  - HYPERHIDROSIS [None]
  - HYPERSENSITIVITY [None]
  - NIGHTMARE [None]
  - PALLOR [None]
  - SCREAMING [None]
  - SKIN DISCOLOURATION [None]
  - SWELLING FACE [None]
  - TONSILLAR HYPERTROPHY [None]
  - WHEEZING [None]
